FAERS Safety Report 8310310-3 (Version None)
Quarter: 2012Q2

REPORT INFORMATION
  Report Type: 
  Country: None (occurrence: None)
  Receive Date: 20120425
  Receipt Date: 20120413
  Transmission Date: 20120825
  Serious: Yes (Other)
  Sender: FDA-Public Use
  Company Number: PHHY2012AU034369

PATIENT
  Sex: Female

DRUGS (7)
  1. PAMIDRONATE DISODIUM [Suspect]
     Indication: HYPERCALCAEMIA
     Dosage: 30 TO 60 MG, SIX WEEKLY
  2. CYCLOSPORINE [Concomitant]
     Indication: IMMUNOSUPPRESSION
  3. ALENDRONATE SODIUM [Suspect]
     Dosage: 70 MG, QW
  4. NORETHINDRONE [Concomitant]
  5. PREDNISONE [Concomitant]
  6. TACROLIMUS [Concomitant]
  7. MYCOPHENOLATE MOFETIL [Concomitant]
     Indication: IMMUNOSUPPRESSION

REACTIONS (11)
  - PELVIC FRACTURE [None]
  - STRESS FRACTURE [None]
  - FEMUR FRACTURE [None]
  - FALL [None]
  - OSTEOSCLEROSIS [None]
  - TRAUMATIC FRACTURE [None]
  - BONE GRAFT [None]
  - KIDNEY TRANSPLANT REJECTION [None]
  - FRACTURE NONUNION [None]
  - LOW TURNOVER OSTEOPATHY [None]
  - FEMORAL NECK FRACTURE [None]
